FAERS Safety Report 13312033 (Version 2)
Quarter: 2017Q2

REPORT INFORMATION
  Report Type: Spontaneous
  Country: US (occurrence: US)
  Receive Date: 20170309
  Receipt Date: 20170421
  Transmission Date: 20170830
  Serious: Yes (Hospitalization)
  Sender: FDA-Public Use
  Company Number: US-PFIZER INC-2017020020

PATIENT
  Age: 55 Year
  Sex: Male
  Weight: 52.16 kg

DRUGS (1)
  1. ANBESOL MAXIMUM STRENGTH [Suspect]
     Active Substance: BENZOCAINE
     Indication: TOOTHACHE
     Dosage: ONCE APPLIED TO TOOTH ON LEFT SIDE (ONCE ONLY THE TIP OF A Q-TIP)
     Dates: start: 20170112, end: 20170112

REACTIONS (8)
  - Lip swelling [Not Recovered/Not Resolved]
  - Hypoaesthesia oral [Not Recovered/Not Resolved]
  - Speech disorder [Recovered/Resolved]
  - Salivary hypersecretion [Recovering/Resolving]
  - Lip haemorrhage [Not Recovered/Not Resolved]
  - Eating disorder [Not Recovered/Not Resolved]
  - Weight decreased [Not Recovered/Not Resolved]
  - Bite [Not Recovered/Not Resolved]

NARRATIVE: CASE EVENT DATE: 201701
